FAERS Safety Report 6837810-7 (Version None)
Quarter: 2010Q3

REPORT INFORMATION
  Report Type: 
  Country: None (occurrence: None)
  Receive Date: 20100713
  Receipt Date: 20070522
  Transmission Date: 20110219
  Serious: No
  Sender: FDA-Public Use
  Company Number: US-PFIZER INC-2007042231

PATIENT
  Sex: Female
  Weight: 53.636 kg

DRUGS (7)
  1. CHANTIX [Suspect]
     Indication: SMOKING CESSATION THERAPY
     Dates: start: 20070515
  2. PREDNISONE [Concomitant]
  3. FOLIC ACID [Concomitant]
  4. TRAZODONE HYDROCHLORIDE [Concomitant]
  5. VICODIN [Concomitant]
  6. OXYCONTIN [Concomitant]
  7. METHOTREXATE [Concomitant]

REACTIONS (2)
  - CHEST DISCOMFORT [None]
  - DYSPNOEA [None]
